FAERS Safety Report 6003355-X (Version None)
Quarter: 2008Q4

REPORT INFORMATION
  Report Type: 
  Country: None (occurrence: None)
  Receive Date: 20081215
  Receipt Date: 20081215
  Transmission Date: 20090506
  Serious: Yes (Life-Threatening)
  Sender: FDA-Public Use
  Company Number: None

PATIENT
  Age: 41 Year
  Sex: Female
  Weight: 87.0906 kg

DRUGS (1)
  1. SEROQUEL [Suspect]
     Indication: MAJOR DEPRESSION
     Dosage: PO, OVER 1 YEAR
     Route: 048
     Dates: start: 20070727, end: 20080808

REACTIONS (3)
  - COORDINATION ABNORMAL [None]
  - GENERAL PHYSICAL HEALTH DETERIORATION [None]
  - VISION BLURRED [None]
